FAERS Safety Report 9638476 (Version 3)
Quarter: 2014Q2

REPORT INFORMATION
  Report Type: Report from Study
  Country: US (occurrence: US)
  Receive Date: 20131022
  Receipt Date: 20140522
  Transmission Date: 20141212
  Serious: Yes (Life-Threatening, Hospitalization, Disabling)
  Sender: FDA-Public Use
  Company Number: PHHO2011US11697

PATIENT
  Age: 70 Year
  Sex: Male
  Weight: 126.53 kg

DRUGS (5)
  1. ACZ885 [Suspect]
     Indication: CARDIOVASCULAR EVENT PROPHYLAXIS
     Dosage: 150 MG, UNK
     Route: 058
     Dates: start: 20110526, end: 20130821
  2. ASPIRIN [Suspect]
  3. ANACIN [Suspect]
     Indication: PYREXIA
     Dosage: UNK
     Dates: start: 20110627, end: 20110701
  4. PLAVIX [Suspect]
     Indication: ANTICOAGULATION DRUG LEVEL
     Dosage: 75 MG, QD
     Route: 048
     Dates: end: 20110701
  5. ASA [Concomitant]
     Indication: PLATELET ADHESIVENESS
     Dosage: 81 MG, QD
     Route: 048
     Dates: end: 20110701

REACTIONS (2)
  - Gastrointestinal haemorrhage [Recovered/Resolved]
  - Concomitant disease progression [Recovering/Resolving]
